FAERS Safety Report 5150913-0 (Version None)
Quarter: 2006Q4

REPORT INFORMATION
  Report Type: 
  Country: None (occurrence: None)
  Receive Date: 20061114
  Receipt Date: 20061108
  Transmission Date: 20070319
  Serious: Yes (Other)
  Sender: FDA-Public Use
  Company Number: BE-BOEHRINGER INGELHEIM PHARMACEUTICALS, INC.-2006-DE-05991BY

PATIENT
  Sex: Female

DRUGS (1)
  1. KINZALKOMB [Suspect]
     Route: 048

REACTIONS (1)
  - DIABETES INSIPIDUS [None]
